FAERS Safety Report 7301252-0 (Version None)
Quarter: 2011Q1

REPORT INFORMATION
  Report Type: 
  Country: None (occurrence: None)
  Receive Date: 20110218
  Receipt Date: 20110214
  Transmission Date: 20110831
  Serious: Yes (Death)
  Sender: FDA-Public Use
  Company Number: US-SANOFI-AVENTIS-2010SA073361

PATIENT
  Age: 76 Year
  Sex: Female

DRUGS (9)
  1. MULTAQ [Suspect]
     Indication: ATRIAL FIBRILLATION
     Route: 048
  2. FLECAINIDE [Concomitant]
  3. POTASSIUM [Concomitant]
  4. PRAVACHOL [Concomitant]
  5. PROPAFENONE HCL [Concomitant]
  6. THYROID THERAPY [Concomitant]
     Indication: HYPOTHYROIDISM
  7. COUMADIN [Concomitant]
     Indication: ATRIAL FIBRILLATION
  8. METOPROLOL [Concomitant]
     Indication: ATRIAL FIBRILLATION
  9. LASIX [Concomitant]

REACTIONS (1)
  - DEATH [None]
